FAERS Safety Report 5579114-9 (Version None)
Quarter: 2008Q1

REPORT INFORMATION
  Report Type: 
  Country: None (occurrence: None)
  Receive Date: 20080102
  Receipt Date: 20071217
  Transmission Date: 20080703
  Serious: Yes (Life-Threatening, Hospitalization)
  Sender: FDA-Public Use
  Company Number: US-ALLERGAN-0712281US

PATIENT
  Sex: Female
  Weight: 28.571 kg

DRUGS (1)
  1. BOTOX [Suspect]
     Indication: MUSCLE SPASTICITY
     Dosage: 1370 UNITS, SINGLE
     Route: 030
     Dates: start: 20070918, end: 20070918

REACTIONS (3)
  - ASTHENIA [None]
  - DYSPHAGIA [None]
  - MUSCULAR WEAKNESS [None]
